FAERS Safety Report 10035932 (Version 2)
Quarter: 2014Q2

REPORT INFORMATION
  Report Type: Spontaneous
  Country: ES (occurrence: ES)
  Receive Date: 20140325
  Receipt Date: 20140415
  Transmission Date: 20141212
  Serious: Yes (Other)
  Sender: FDA-Public Use
  Company Number: ES-CELGENEUS-144-21660-14031841

PATIENT
  Age: 61 Year
  Sex: Female
  Weight: 46 kg

DRUGS (5)
  1. ABRAXANE [Suspect]
     Indication: PANCREATIC CARCINOMA
     Dosage: 50 MILLIGRAM/SQ. METER
     Route: 041
     Dates: start: 20131111
  2. ABRAXANE [Suspect]
     Dosage: 50 MILLIGRAM/SQ. METER
     Route: 041
     Dates: end: 20140122
  3. GEMCITABINE [Concomitant]
     Indication: PANCREATIC CARCINOMA
     Dosage: 400 MILLIGRAM/SQ. METER
     Route: 041
     Dates: start: 20131111
  4. GEMCITABINE [Concomitant]
     Dosage: 1000 MILLIGRAM/SQ. METER
     Route: 041
  5. OXYCODONE [Concomitant]
     Indication: ANALGESIC THERAPY
     Dosage: 80 MILLIGRAM
     Route: 048
     Dates: start: 201311

REACTIONS (9)
  - Transaminases increased [Recovered/Resolved]
  - Cholangitis [Recovered/Resolved]
  - Anaemia [Recovering/Resolving]
  - Lymphopenia [Recovered/Resolved]
  - Asthenia [Recovered/Resolved]
  - Diarrhoea [Recovered/Resolved]
  - Vomiting [Recovered/Resolved]
  - Oedema peripheral [Recovering/Resolving]
  - Lymphopenia [Recovering/Resolving]
